FAERS Safety Report 7708868-8 (Version None)
Quarter: 2011Q3

REPORT INFORMATION
  Report Type: 
  Country: None (occurrence: None)
  Receive Date: 20110825
  Receipt Date: 20110811
  Transmission Date: 20111222
  Serious: Yes (Hospitalization, Other)
  Sender: FDA-Public Use
  Company Number: US-CELGENEUS-163-21880-11081569

PATIENT
  Age: 68 Year
  Sex: Female

DRUGS (6)
  1. DEXAMETHASONE [Concomitant]
     Route: 065
     Dates: start: 20100101
  2. OMEPRAZOLE [Concomitant]
     Route: 065
  3. TRIAMTERENE AND HYDROCHLOROTHIAZIDE [Concomitant]
     Route: 065
  4. REVLIMID [Suspect]
     Dosage: 10 MILLIGRAM
     Route: 048
     Dates: end: 20110622
  5. GABAPENTIN [Concomitant]
     Route: 065
  6. REVLIMID [Suspect]
     Indication: MULTIPLE MYELOMA
     Dosage: 25 MILLIGRAM
     Route: 048
     Dates: start: 20100101, end: 20100701

REACTIONS (5)
  - PLATELET COUNT DECREASED [None]
  - URINARY TRACT INFECTION [None]
  - NEUTROPHIL COUNT DECREASED [None]
  - HAEMOGLOBIN DECREASED [None]
  - SUBDURAL HAEMATOMA [None]
